FAERS Safety Report 5387219-0 (Version None)
Quarter: 2007Q3

REPORT INFORMATION
  Report Type: 
  Country: None (occurrence: None)
  Receive Date: 20070716
  Receipt Date: 20070509
  Transmission Date: 20080115
  Serious: Yes (Other)
  Sender: FDA-Public Use
  Company Number: US-RB-3457-2006

PATIENT
  Sex: Female
  Weight: 60.75 kg

DRUGS (6)
  1. SUBUTEX [Suspect]
     Route: 060
     Dates: start: 20060614
  2. SUBOXONE [Suspect]
     Route: 060
     Dates: start: 20050831, end: 20060613
  3. SUBOXONE [Suspect]
     Route: 060
     Dates: start: 20050713, end: 20050830
  4. SUBOXONE [Suspect]
     Route: 060
     Dates: start: 20050501, end: 20050712
  5. SUBOXONE [Suspect]
     Route: 060
     Dates: start: 20050309, end: 20050430
  6. SUBOXONE [Suspect]
     Route: 060
     Dates: start: 20040303, end: 20050308

REACTIONS (2)
  - ABORTION SPONTANEOUS [None]
  - PREGNANCY [None]
